FAERS Safety Report 22630566 (Version 1)
Quarter: 2023Q2

REPORT INFORMATION
  Report Type: Report from Study
  Country: CA (occurrence: CA)
  Receive Date: 20230622
  Receipt Date: 20230622
  Transmission Date: 20230721
  Serious: Yes (Other)
  Sender: FDA-Public Use
  Company Number: CA-HLS-202108645

PATIENT
  Age: 16 Year
  Sex: Female

DRUGS (3)
  1. CLOZARIL [Suspect]
     Active Substance: CLOZAPINE
     Indication: Schizophrenia
     Dosage: 200 MG THREE TIMES DAILY   REDUCED TO 200 MG AT BEDTIME
     Route: 048
     Dates: start: 20211019
  2. Atropine drops [Concomitant]
     Indication: Drooling
     Dosage: 1% (ONE TO TWO DROPS SUBLINGUALLY AT BEDTIME AS NEEDED FOR DROOLING RELATED TO CLOZAPINE)
     Route: 060
  3. ATROVENT HFA [Concomitant]
     Active Substance: IPRATROPIUM BROMIDE
     Indication: Drooling
     Dosage: INHALER 220MCG , 1 SPRAY SUBLINGUALLY AT NIGHT AS NEEDED
     Route: 065

REACTIONS (7)
  - Blood pressure decreased [Unknown]
  - C-reactive protein increased [Unknown]
  - Drooling [Recovering/Resolving]
  - Heart rate increased [Unknown]
  - Palpitations [Unknown]
  - Off label use [Not Recovered/Not Resolved]
  - Chest discomfort [Unknown]

NARRATIVE: CASE EVENT DATE: 20211019
